FAERS Safety Report 11929971 (Version 1)
Quarter: 2016Q1

REPORT INFORMATION
  Report Type: Spontaneous
  Country: US (occurrence: None)
  Receive Date: 20160119
  Receipt Date: 20160119
  Transmission Date: 20160526
  Serious: Yes (Life-Threatening, Hospitalization, Disabling, Other)
  Sender: FDA-Public Use
  Company Number: None

PATIENT
  Age: 66 Year
  Sex: Female
  Weight: 68.04 kg

DRUGS (6)
  1. PROTONIX [Concomitant]
     Active Substance: PANTOPRAZOLE SODIUM
  2. CIPRO [Suspect]
     Active Substance: CIPROFLOXACIN HYDROCHLORIDE
     Indication: ANIMAL BITE
     Dosage: 1 PILL
     Route: 048
     Dates: start: 20141012, end: 20141013
  3. TEMAZEPAM. [Concomitant]
     Active Substance: TEMAZEPAM
  4. ZANTAC [Concomitant]
     Active Substance: RANITIDINE HYDROCHLORIDE
  5. DAILY MULTIVITAMIN [Concomitant]
     Active Substance: VITAMINS
  6. CARAFATE [Concomitant]
     Active Substance: SUCRALFATE

REACTIONS (19)
  - Paralysis [None]
  - Muscular weakness [None]
  - Rash generalised [None]
  - Glossodynia [None]
  - Insomnia [None]
  - Depression [None]
  - Memory impairment [None]
  - Seizure [None]
  - Suicidal ideation [None]
  - Gait disturbance [None]
  - Oral pain [None]
  - Loss of consciousness [None]
  - Cognitive disorder [None]
  - Activities of daily living impaired [None]
  - Obstructive airways disorder [None]
  - Gastrointestinal haemorrhage [None]
  - Abdominal pain upper [None]
  - Anxiety [None]
  - Fall [None]

NARRATIVE: CASE EVENT DATE: 20141012
